FAERS Safety Report 5082742-0 (Version None)
Quarter: 2006Q3

REPORT INFORMATION
  Report Type: 
  Country: None (occurrence: None)
  Receive Date: 20060816
  Receipt Date: 20060816
  Transmission Date: 20061208
  Serious: No
  Sender: FDA-Public Use
  Company Number: None

PATIENT
  Sex: Male
  Weight: 99.7913 kg

DRUGS (2)
  1. OXYCODONE HCL [Suspect]
     Indication: ARTHRALGIA
     Dosage: 40MG  TID  PO
     Route: 048
  2. OXYCODONE HCL [Suspect]
     Indication: BACK PAIN
     Dosage: 40MG  TID  PO
     Route: 048

REACTIONS (1)
  - DRUG INEFFECTIVE [None]
